FAERS Safety Report 10306082 (Version 1)
Quarter: 2014Q3

REPORT INFORMATION
  Report Type: Spontaneous
  Country: US (occurrence: US)
  Receive Date: 20140715
  Receipt Date: 20140715
  Transmission Date: 20150326
  Serious: No
  Sender: FDA-Public Use
  Company Number: US-GILEAD-2014-0108621

PATIENT
  Sex: Female

DRUGS (16)
  1. ZOLPIDEM [Concomitant]
     Active Substance: ZOLPIDEM\ZOLPIDEM TARTRATE
  2. FUROSEMIDE. [Concomitant]
     Active Substance: FUROSEMIDE
  3. GLIMEPIRIDE. [Concomitant]
     Active Substance: GLIMEPIRIDE
  4. TRAMADOL [Concomitant]
     Active Substance: TRAMADOL
  5. METOPROLOL [Concomitant]
     Active Substance: METOPROLOL
  6. LETAIRIS [Suspect]
     Active Substance: AMBRISENTAN
     Indication: PULMONARY ARTERIAL HYPERTENSION
     Route: 065
     Dates: start: 20131214
  7. LOSARTAN [Concomitant]
     Active Substance: LOSARTAN
  8. ISOSORBIDE [Concomitant]
     Active Substance: ISOSORBIDE
  9. NITROSTAT [Concomitant]
     Active Substance: NITROGLYCERIN
  10. ROPINIROLE. [Concomitant]
     Active Substance: ROPINIROLE
  11. LYRICA [Concomitant]
     Active Substance: PREGABALIN
  12. KLOR-CON [Concomitant]
     Active Substance: POTASSIUM CHLORIDE
  13. CELEBREX [Concomitant]
     Active Substance: CELECOXIB
  14. PROAIR HFA [Concomitant]
     Active Substance: ALBUTEROL SULFATE
  15. PIOGLITAZONE [Concomitant]
     Active Substance: PIOGLITAZONE
  16. LIPITOR [Concomitant]
     Active Substance: ATORVASTATIN CALCIUM

REACTIONS (2)
  - No therapeutic response [Unknown]
  - Dyspnoea [Unknown]
